FAERS Safety Report 10979558 (Version 2)
Quarter: 2015Q3

REPORT INFORMATION
  Report Type: Spontaneous
  Country: TW (occurrence: TW)
  Receive Date: 20150402
  Receipt Date: 20150716
  Transmission Date: 20151125
  Serious: Yes (Hospitalization, Other)
  Sender: FDA-Public Use
  Company Number: TW-BAYER-2015-068759

PATIENT
  Age: 49 Year
  Sex: Male

DRUGS (2)
  1. ACETYLSALICYLIC ACID({=100 MG) [Suspect]
     Active Substance: ASPIRIN
     Indication: CARDIOVASCULAR EVENT PROPHYLAXIS
     Dosage: 100 MG, QD
  2. ATORVASTATIN [Suspect]
     Active Substance: ATORVASTATIN
     Indication: CARDIOVASCULAR EVENT PROPHYLAXIS
     Dosage: 40 MG, QD

REACTIONS (4)
  - Brachiocephalic artery occlusion [Recovered/Resolved]
  - Cerebral infarction [None]
  - Subclavian steal syndrome [None]
  - Transient ischaemic attack [None]
